FAERS Safety Report 11037680 (Version 1)
Quarter: 2015Q2

REPORT INFORMATION
  Report Type: Spontaneous
  Country: US (occurrence: None)
  Receive Date: 20150415
  Receipt Date: 20150415
  Transmission Date: 20150821
  Serious: Yes (Disabling)
  Sender: FDA-Public Use
  Company Number: None

PATIENT
  Age: 27 Year
  Sex: Male
  Weight: 74.84 kg

DRUGS (10)
  1. LAMOTRIGINE 100 MG [Suspect]
     Active Substance: LAMOTRIGINE
     Indication: ANXIETY
     Dosage: 1 TABLET
     Route: 048
     Dates: start: 20150115, end: 20150413
  2. XANEX [Concomitant]
  3. LATUDA [Concomitant]
     Active Substance: LURASIDONE HYDROCHLORIDE
  4. LAMOTRIGINE 100 MG [Suspect]
     Active Substance: LAMOTRIGINE
     Indication: DEPRESSION
     Dosage: 1 TABLET
     Route: 048
     Dates: start: 20150115, end: 20150413
  5. LITHIUM. [Concomitant]
     Active Substance: LITHIUM
  6. VITAMIN D PLUS CALCIUM 600 [Concomitant]
  7. LAMOTRIGINE. [Concomitant]
     Active Substance: LAMOTRIGINE
  8. LAMOTRIGINE 100 MG [Suspect]
     Active Substance: LAMOTRIGINE
     Indication: SCHIZOAFFECTIVE DISORDER BIPOLAR TYPE
     Dosage: 1 TABLET
     Route: 048
     Dates: start: 20150115, end: 20150413
  9. PANZODAL [Concomitant]
  10. LAMOTRIGINE 100 MG [Suspect]
     Active Substance: LAMOTRIGINE
     Indication: BIPOLAR DISORDER
     Dosage: 1 TABLET
     Route: 048
     Dates: start: 20150115, end: 20150413

REACTIONS (5)
  - Sleep disorder [None]
  - Somnambulism [None]
  - Depression [None]
  - Anxiety [None]
  - Somnolence [None]

NARRATIVE: CASE EVENT DATE: 20150317
